FAERS Safety Report 4305928-9 (Version None)
Quarter: 2004Q1

REPORT INFORMATION
  Report Type: 
  Country: None (occurrence: None)
  Receive Date: 20040225
  Receipt Date: 20040209
  Transmission Date: 20041129
  Serious: No
  Sender: FDA-Public Use
  Company Number: M04-INT-016

PATIENT
  Age: 55 Year
  Sex: Male

DRUGS (4)
  1. INTEGRILIN [Suspect]
     Indication: ACUTE CORONARY SYNDROME
     Dosage: 180 MCG/KG X 1: INTRAVENOUS BOLUS
     Route: 040
  2. ACETYLSALICYLIC ACID [Concomitant]
  3. CLOPIDOGREL BISULFATE [Concomitant]
  4. HEPARIN [Concomitant]

REACTIONS (4)
  - BRADYCARDIA [None]
  - HYPOTENSION [None]
  - PYREXIA [None]
  - THROMBOCYTOPENIA [None]
